FAERS Safety Report 8105389-8 (Version None)
Quarter: 2012Q1

REPORT INFORMATION
  Report Type: 
  Country: None (occurrence: None)
  Receive Date: 20120201
  Receipt Date: 20120131
  Transmission Date: 20120608
  Serious: Yes (Death)
  Sender: FDA-Public Use
  Company Number: PHHY2012DE007620

PATIENT
  Sex: Male

DRUGS (4)
  1. TAMSULOSIN HCL [Concomitant]
     Indication: BLADDER DISORDER
     Dosage: 0.4 MG, UNK
     Route: 048
     Dates: start: 20120101
  2. PHENPROCOUMON [Concomitant]
     Indication: PULMONARY EMBOLISM
     Route: 048
     Dates: start: 20120101
  3. PANTOPRAZOLE [Concomitant]
     Dosage: 40 MG, PRN
     Route: 048
  4. GILENYA [Suspect]
     Indication: MULTIPLE SCLEROSIS
     Dosage: 0.5 MG, QD
     Route: 048
     Dates: start: 20120103

REACTIONS (2)
  - COMPLETED SUICIDE [None]
  - ASPHYXIA [None]
